FAERS Safety Report 4549491-6 (Version None)
Quarter: 2005Q1

REPORT INFORMATION
  Report Type: 
  Country: None (occurrence: None)
  Receive Date: 20050106
  Receipt Date: 20041230
  Transmission Date: 20050727
  Serious: Yes (Life-Threatening, Hospitalization)
  Sender: FDA-Public Use
  Company Number: 2004SE03748

PATIENT
  Age: 56 Year
  Sex: Male

DRUGS (5)
  1. BLOPRESS [Suspect]
     Indication: HYPERTENSION
     Dosage: 4 MG QD PO
     Route: 048
     Dates: start: 20040408, end: 20040615
  2. WARFARIN SODIUM [Suspect]
     Indication: HYPERTENSION
     Dosage: 3 MG QD PO
     Route: 048
     Dates: start: 20040408
  3. GASTER [Suspect]
     Dosage: 20 MG QD PO
     Route: 048
     Dates: start: 20040408
  4. RYTHMODAN [Suspect]
     Dosage: 3 DF QD PO
     Route: 048
     Dates: start: 20040408
  5. PERSANTIN [Suspect]
     Dates: start: 20040408

REACTIONS (9)
  - ANOREXIA [None]
  - ASCITES [None]
  - ENCEPHALOPATHY [None]
  - EPISTAXIS [None]
  - HAEMODIALYSIS [None]
  - HEPATIC ATROPHY [None]
  - HEPATITIS FULMINANT [None]
  - LIVER TRANSPLANT [None]
  - PROTHROMBIN TIME SHORTENED [None]
